FAERS Safety Report 7365987-6 (Version None)
Quarter: 2011Q1

REPORT INFORMATION
  Report Type: 
  Country: None (occurrence: None)
  Receive Date: 20110316
  Receipt Date: 20110316
  Transmission Date: 20110831
  Serious: Yes (Death, Hospitalization)
  Sender: FDA-Public Use
  Company Number: None

PATIENT
  Sex: Female
  Weight: 118.3 kg

DRUGS (2)
  1. FLUOROURACIL [Suspect]
     Dosage: 6632 MG
  2. ERBITUX [Suspect]
     Dosage: 553 MG

REACTIONS (24)
  - PERFORMANCE STATUS DECREASED [None]
  - RECTAL HAEMORRHAGE [None]
  - INTESTINAL OBSTRUCTION [None]
  - ILEUS [None]
  - CHOLELITHIASIS [None]
  - PLATELET COUNT DECREASED [None]
  - CARDIAC ENZYMES INCREASED [None]
  - SEPSIS [None]
  - DIARRHOEA [None]
  - HYPOTENSION [None]
  - RESPIRATORY FAILURE [None]
  - INTERNATIONAL NORMALISED RATIO INCREASED [None]
  - CONSTIPATION [None]
  - DECREASED APPETITE [None]
  - ATELECTASIS [None]
  - GALLBLADDER ENLARGEMENT [None]
  - COLITIS [None]
  - ASTHENIA [None]
  - PNEUMONIA [None]
  - LOWER GASTROINTESTINAL HAEMORRHAGE [None]
  - RENAL FAILURE [None]
  - VOMITING [None]
  - BLOOD ALBUMIN DECREASED [None]
  - DIVERTICULUM INTESTINAL [None]
